FAERS Safety Report 8151767-0 (Version None)
Quarter: 2012Q1

REPORT INFORMATION
  Report Type: 
  Country: None (occurrence: None)
  Receive Date: 20120221
  Receipt Date: 20120208
  Transmission Date: 20120608
  Serious: No
  Sender: FDA-Public Use
  Company Number: US-BIOGENIDEC-2012BI005207

PATIENT
  Sex: Male

DRUGS (2)
  1. COP (PRESUME COPAXONE) [Concomitant]
  2. TYSABRI [Suspect]
     Indication: MULTIPLE SCLEROSIS
     Route: 042
     Dates: start: 20100310, end: 20110914

REACTIONS (4)
  - DIZZINESS [None]
  - DRUG SPECIFIC ANTIBODY PRESENT [None]
  - FATIGUE [None]
  - HEADACHE [None]
